FAERS Safety Report 4909176-0 (Version None)
Quarter: 2006Q1

REPORT INFORMATION
  Report Type: 
  Country: None (occurrence: None)
  Receive Date: 20060209
  Receipt Date: 20060209
  Transmission Date: 20060701
  Serious: Yes (Other)
  Sender: FDA-Public Use
  Company Number: None

PATIENT
  Age: 14 Year
  Sex: Male
  Weight: 49.8957 kg

DRUGS (1)
  1. METADATE CD [Suspect]
     Dates: start: 19980301, end: 20040301

REACTIONS (2)
  - ANGINA PECTORIS [None]
  - CHEST PAIN [None]
